FAERS Safety Report 17889334 (Version 6)
Quarter: 2020Q3

REPORT INFORMATION
  Report Type: Spontaneous
  Country: ES (occurrence: ES)
  Receive Date: 20200612
  Receipt Date: 20200718
  Transmission Date: 20201103
  Serious: Yes (Death, Hospitalization)
  Sender: FDA-Public Use
  Company Number: NVSC2020ES163398

PATIENT
  Age: 95 Year
  Sex: Female

DRUGS (23)
  1. SERTRALINE [Interacting]
     Active Substance: SERTRALINE HYDROCHLORIDE
     Indication: DEPRESSION
     Dosage: 50 MG, QD
     Route: 065
  2. QUETIAPINE. [Suspect]
     Active Substance: QUETIAPINE
     Indication: DEPRESSION
     Dosage: 50 MG, QD
     Route: 065
  3. TRAZODONE [Interacting]
     Active Substance: TRAZODONE HYDROCHLORIDE
     Indication: PSEUDODEMENTIA
     Dosage: UNK
     Route: 065
     Dates: start: 2007
  4. LOSARTAN. [Concomitant]
     Active Substance: LOSARTAN
     Indication: PRODUCT USED FOR UNKNOWN INDICATION
     Dosage: 100 MG, QD
     Route: 065
  5. OMEPRAZOLE. [Concomitant]
     Active Substance: OMEPRAZOLE
     Indication: PRODUCT USED FOR UNKNOWN INDICATION
     Dosage: 20 MG, QD
     Route: 065
  6. RISPERIDONE. [Interacting]
     Active Substance: RISPERIDONE
     Indication: DELIRIUM
  7. FUROSEMIDE. [Concomitant]
     Active Substance: FUROSEMIDE
     Indication: PRODUCT USED FOR UNKNOWN INDICATION
     Dosage: 80 MG, QD
     Route: 065
  8. SIMVASTATIN. [Concomitant]
     Active Substance: SIMVASTATIN
     Indication: PRODUCT USED FOR UNKNOWN INDICATION
     Dosage: 10 MG, QD
     Route: 065
  9. QUETIAPINE. [Suspect]
     Active Substance: QUETIAPINE
     Indication: PSEUDODEMENTIA
  10. ALPRAZOLAM. [Suspect]
     Active Substance: ALPRAZOLAM
     Indication: PSEUDODEMENTIA
     Dosage: UNK
     Route: 065
  11. AMLODIPINE [Concomitant]
     Active Substance: AMLODIPINE BESYLATE
     Indication: PRODUCT USED FOR UNKNOWN INDICATION
     Dosage: 10 MG, QD
     Route: 065
  12. CLONAZEPAM. [Suspect]
     Active Substance: CLONAZEPAM
     Indication: DEMENTIA
     Dosage: UNK
     Route: 065
  13. ACENOCUMAROL [Suspect]
     Active Substance: ACENOCOUMAROL
     Indication: PRODUCT USED FOR UNKNOWN INDICATION
     Dosage: 9 MG, QW
     Route: 065
  14. ACENOCUMAROL [Suspect]
     Active Substance: ACENOCOUMAROL
     Dosage: 9 MG, QD
     Route: 065
  15. RISPERIDONE. [Interacting]
     Active Substance: RISPERIDONE
     Indication: PSEUDODEMENTIA
     Dosage: 4 MG, QD
     Route: 065
  16. ZALDIAR [Interacting]
     Active Substance: ACETAMINOPHEN\TRAMADOL HYDROCHLORIDE
     Indication: PRODUCT USED FOR UNKNOWN INDICATION
     Dosage: 37.5/325 MG
     Route: 065
  17. ZALDIAR [Interacting]
     Active Substance: ACETAMINOPHEN\TRAMADOL HYDROCHLORIDE
     Dosage: 1 DOSAGE FORM, EVERY 12 HRS, AT BREAKFAST AND DINNER
     Route: 065
  18. LORAZEPAM. [Interacting]
     Active Substance: LORAZEPAM
     Indication: DELIRIUM
     Dosage: 2 MG, QD
     Route: 065
  19. RISPERIDONE. [Interacting]
     Active Substance: RISPERIDONE
     Indication: DEPRESSION
     Dosage: 2 MG, QD
     Route: 065
  20. QUETIAPINE. [Suspect]
     Active Substance: QUETIAPINE
     Indication: DELIRIUM
  21. SERTRALINE [Interacting]
     Active Substance: SERTRALINE HYDROCHLORIDE
     Indication: PSEUDODEMENTIA
  22. PAROXETINE. [Interacting]
     Active Substance: PAROXETINE
     Indication: PSEUDODEMENTIA
     Dosage: UNK
     Route: 065
     Dates: start: 2007
  23. SPIRONOLACTONE. [Concomitant]
     Active Substance: SPIRONOLACTONE
     Indication: PRODUCT USED FOR UNKNOWN INDICATION
     Dosage: 100 MG, QD
     Route: 065

REACTIONS (12)
  - Neurological decompensation [Unknown]
  - Disorganised speech [Unknown]
  - Dysphagia [Unknown]
  - Serotonin syndrome [Fatal]
  - Confusional state [Unknown]
  - Cardiac arrest [Fatal]
  - Gastrointestinal sounds abnormal [Unknown]
  - Drug interaction [Fatal]
  - Blood pressure increased [Unknown]
  - Delirium [Recovering/Resolving]
  - Diarrhoea [Unknown]
  - Cardio-respiratory arrest [Fatal]
